FAERS Safety Report 26030524 (Version 1)
Quarter: 2025Q4

REPORT INFORMATION
  Report Type: Spontaneous
  Country: JP (occurrence: JP)
  Receive Date: 20251112
  Receipt Date: 20251112
  Transmission Date: 20260117
  Serious: Yes (Hospitalization, Other)
  Sender: SOMERSET THERAPEUTICS, LLC
  Company Number: JP-MIT-25-75-JP-2025-SOM-LIT-00101

PATIENT
  Age: 90 Year
  Sex: Male
  Weight: 52.1 kg

DRUGS (9)
  1. ESOMEPRAZOLE MAGNESIUM [Suspect]
     Active Substance: ESOMEPRAZOLE MAGNESIUM
     Indication: Gastrooesophageal reflux disease
     Route: 065
  2. TELMISARTAN [Concomitant]
     Active Substance: TELMISARTAN
     Indication: Hypertension
     Route: 065
  3. NIFEDIPINE [Concomitant]
     Active Substance: NIFEDIPINE
     Indication: Hypertension
     Dosage: CONTROLLED-RELEASE
     Route: 065
  4. AMLODIPINE [Concomitant]
     Active Substance: AMLODIPINE BESYLATE
     Indication: Hypertension
     Route: 065
  5. CARVEDILOL [Concomitant]
     Active Substance: CARVEDILOL
     Indication: Hypertension
     Route: 065
  6. DOXAZOSIN [Concomitant]
     Active Substance: DOXAZOSIN MESYLATE
     Indication: Hypertension
     Route: 065
  7. CALCIUM CARBONATE [Concomitant]
     Active Substance: CALCIUM CARBONATE
     Indication: Hyperphosphataemia
     Route: 065
  8. HEPARIN [Concomitant]
     Active Substance: HEPARIN SODIUM
     Indication: Anticoagulant therapy
     Route: 042
  9. NAFAMOSTAT [Concomitant]
     Active Substance: NAFAMOSTAT
     Indication: Anticoagulant therapy
     Route: 065

REACTIONS (7)
  - Nephrogenic anaemia [Recovering/Resolving]
  - Hypergastrinaemia [Recovering/Resolving]
  - Gastrointestinal haemorrhage [Recovering/Resolving]
  - Iron deficiency [Recovering/Resolving]
  - Condition aggravated [Recovering/Resolving]
  - Gastric polyps [Recovering/Resolving]
  - Anaemia [Recovering/Resolving]
